FAERS Safety Report 20750303 (Version 1)
Quarter: 2022Q2

REPORT INFORMATION
  Report Type: Spontaneous
  Country: US (occurrence: US)
  Receive Date: 20220426
  Receipt Date: 20220426
  Transmission Date: 20220721
  Serious: No
  Sender: FDA-Public Use
  Company Number: US-PFIZER INC-202101183802

PATIENT
  Age: 70 Year
  Sex: Female
  Weight: 58.06 kg

DRUGS (2)
  1. CHANTIX [Suspect]
     Active Substance: VARENICLINE TARTRATE
     Indication: Smoking cessation therapy
     Dosage: 1 MG, 2X/DAY (ONE PILL MORNING AND ONE AT NIGHT)
     Dates: start: 202009, end: 2021
  2. JAKAFI [Concomitant]
     Active Substance: RUXOLITINIB
     Indication: Blood disorder
     Dosage: 20 MG, 2X/DAY (ONE MORNING AND NIGHT)

REACTIONS (2)
  - Platelet disorder [Unknown]
  - Tinnitus [Unknown]

NARRATIVE: CASE EVENT DATE: 20210701
